FAERS Safety Report 25962730 (Version 1)
Quarter: 2025Q4

REPORT INFORMATION
  Report Type: Spontaneous
  Country: CN (occurrence: CN)
  Receive Date: 20251027
  Receipt Date: 20251027
  Transmission Date: 20260118
  Serious: Yes (Other)
  Sender: Onesource Specialty Pharma
  Company Number: CN-STRIDES ARCOLAB LIMITED-2025OS001039

PATIENT
  Age: 72 Year
  Sex: Male

DRUGS (4)
  1. ETOPOSIDE [Suspect]
     Active Substance: ETOPOSIDE
     Indication: Small cell lung cancer
     Dosage: UNK, FOUR CYCLES
     Route: 065
     Dates: start: 202006, end: 202008
  2. ETOPOSIDE [Suspect]
     Active Substance: ETOPOSIDE
     Indication: Hepatocellular carcinoma
  3. CARBOPLATIN [Suspect]
     Active Substance: CARBOPLATIN
     Indication: Small cell lung cancer
     Dosage: FOUR CYCLES
     Route: 065
     Dates: start: 202006, end: 202008
  4. CARBOPLATIN [Suspect]
     Active Substance: CARBOPLATIN
     Indication: Hepatocellular carcinoma

REACTIONS (3)
  - Heart failure with reduced ejection fraction [Unknown]
  - Therapy partial responder [Unknown]
  - Off label use [Unknown]

NARRATIVE: CASE EVENT DATE: 20200101
